FAERS Safety Report 20212070 (Version 2)
Quarter: 2022Q1

REPORT INFORMATION
  Report Type: Spontaneous
  Country: CA (occurrence: CA)
  Receive Date: 20211221
  Receipt Date: 20220119
  Transmission Date: 20220424
  Serious: Yes (Other)
  Sender: FDA-Public Use
  Company Number: CA-JNJFOC-20211233884

PATIENT
  Age: 65 Year
  Sex: Male
  Weight: 88.2 kg

DRUGS (2)
  1. INVOKANA [Suspect]
     Active Substance: CANAGLIFLOZIN
     Indication: Type 2 diabetes mellitus
     Route: 048
     Dates: start: 202001, end: 202112
  2. INVOKANA [Suspect]
     Active Substance: CANAGLIFLOZIN
     Indication: Cardiovascular disorder
     Route: 048
     Dates: start: 202201

REACTIONS (2)
  - Bladder cancer [Not Recovered/Not Resolved]
  - Vascular graft [Unknown]

NARRATIVE: CASE EVENT DATE: 20210501
